FAERS Safety Report 4363220-0 (Version None)
Quarter: 2004Q2

REPORT INFORMATION
  Report Type: 
  Country: None (occurrence: None)
  Receive Date: 20040518
  Receipt Date: 20040507
  Transmission Date: 20050107
  Serious: Yes (Hospitalization)
  Sender: FDA-Public Use
  Company Number: EM2004-0236

PATIENT
  Sex: 0

DRUGS (8)
  1. PROLEUKIN; CHIRON CORPOROTION (ALDESLEUKIN) INJECTION [Suspect]
     Indication: RENAL CELL CARCINOMA STAGE UNSPECIFIED
  2. INTERFERON ALFA(INTERFERON ALFA) [Suspect]
     Indication: RENAL CELL CARCINOMA STAGE UNSPECIFIED
  3. FLUOROURACIL [Suspect]
     Indication: RENAL CELL CARCINOMA STAGE UNSPECIFIED
  4. AMITRIPTYLINE HCL [Concomitant]
  5. AMLODIPINE [Concomitant]
  6. METOCLOPRAMIDE [Concomitant]
  7. TERZOSIN (TERAZOSIN) [Concomitant]
  8. ACETAMINOPHEN [Concomitant]

REACTIONS (2)
  - BODY TEMPERATURE INCREASED [None]
  - INFLUENZA LIKE ILLNESS [None]
